FAERS Safety Report 8396604-4 (Version None)
Quarter: 2012Q2

REPORT INFORMATION
  Report Type: 
  Country: None (occurrence: None)
  Receive Date: 20120530
  Receipt Date: 20120521
  Transmission Date: 20120825
  Serious: Yes (Other)
  Sender: FDA-Public Use
  Company Number: BE-ROXANE LABORATORIES, INC.-2012-RO-01288RO

PATIENT
  Age: 46 Year
  Sex: Male

DRUGS (5)
  1. ANTIBIOTICS [Suspect]
     Indication: MENINGITIS STREPTOCOCCAL
  2. ANTIBIOTICS [Concomitant]
  3. PHENYTOIN [Suspect]
     Indication: MENINGITIS STREPTOCOCCAL
  4. DEXAMETHASONE [Suspect]
     Indication: MENINGITIS STREPTOCOCCAL
  5. METHYLPREDNISOLONE [Suspect]

REACTIONS (2)
  - HUMAN HERPESVIRUS 6 INFECTION [None]
  - DRUG RASH WITH EOSINOPHILIA AND SYSTEMIC SYMPTOMS [None]
